FAERS Safety Report 24060114 (Version 1)
Quarter: 2024Q3

REPORT INFORMATION
  Report Type: Spontaneous
  Country: US (occurrence: None)
  Receive Date: 20240705
  Receipt Date: 20240705
  Transmission Date: 20241016
  Serious: No
  Sender: Public
  Company Number: None

PATIENT
  Age: 35 Year
  Sex: Female
  Weight: 146.51 kg

DRUGS (1)
  1. COSENTYX [Suspect]
     Active Substance: SECUKINUMAB
     Indication: Hidradenitis
     Dosage: OTHER QUANTITY : 300MG (1 PEN);?FREQUENCY : AS DIRECTED;?INJECT 300 MG EVERY WEEK FOR 5 WEEKS SUBCUT
     Route: 058
     Dates: start: 202403

REACTIONS (3)
  - Therapy interrupted [None]
  - Infection [None]
  - Spinal operation [None]
